FAERS Safety Report 17345633 (Version 4)
Quarter: 2021Q4

REPORT INFORMATION
  Report Type: Report from Study
  Country: JP (occurrence: JP)
  Receive Date: 20200129
  Receipt Date: 20211124
  Transmission Date: 20220303
  Serious: Yes (Hospitalization, Other)
  Sender: FDA-Public Use
  Company Number: JP-TEVA-2019-JP-1160920

PATIENT
  Age: 71 Year
  Sex: Female
  Weight: 60 kg

DRUGS (16)
  1. RASAGILINE MESYLATE [Suspect]
     Active Substance: RASAGILINE MESYLATE
     Indication: Parkinson^s disease
     Dosage: 1 MILLIGRAM DAILY;
     Route: 065
     Dates: start: 20190605, end: 20191119
  2. LEVODOPA [Concomitant]
     Active Substance: LEVODOPA
  3. CABERGOLINE [Concomitant]
     Active Substance: CABERGOLINE
     Dates: end: 20190730
  4. NEUPRO [Concomitant]
     Active Substance: ROTIGOTINE
     Dates: start: 20190731
  5. ENTACAPONE [Concomitant]
     Active Substance: ENTACAPONE
     Dates: end: 20191119
  6. CARBIDOPA\LEVODOPA [Concomitant]
     Active Substance: CARBIDOPA\LEVODOPA
  7. MINODRONIC ACID [Concomitant]
     Active Substance: MINODRONIC ACID
  8. LYRICA [Concomitant]
     Active Substance: PREGABALIN
  9. CALONAL [Concomitant]
     Active Substance: ACETAMINOPHEN
  10. MAGNESIUM OXIDE [Concomitant]
     Active Substance: MAGNESIUM OXIDE
  11. XARELTO [Concomitant]
     Active Substance: RIVAROXABAN
  12. RABEPRAZOLE SODIUM [Concomitant]
     Active Substance: RABEPRAZOLE SODIUM
  13. ATORVASTATIN CALCIUM [Concomitant]
     Active Substance: ATORVASTATIN CALCIUM
  14. AZOSEMIDE [Concomitant]
     Active Substance: AZOSEMIDE
  15. VERAPAMIL HYDROCHLORIDE [Concomitant]
     Active Substance: VERAPAMIL HYDROCHLORIDE
  16. SOLU-MEDROL [Concomitant]
     Active Substance: METHYLPREDNISOLONE SODIUM SUCCINATE
     Route: 065

REACTIONS (8)
  - Cardiac failure congestive [Recovered/Resolved]
  - Tachycardia [Recovered/Resolved]
  - Blood pressure fluctuation [Recovered/Resolved]
  - C-reactive protein increased [Recovered/Resolved]
  - Hepatic function abnormal [Recovered/Resolved]
  - Acute kidney injury [Recovered/Resolved]
  - Cardiomyopathy [Recovered/Resolved]
  - Congestive hepatopathy [Recovered/Resolved]

NARRATIVE: CASE EVENT DATE: 20191031
